FAERS Safety Report 7351407-4 (Version None)
Quarter: 2011Q1

REPORT INFORMATION
  Report Type: 
  Country: None (occurrence: None)
  Receive Date: 20110314
  Receipt Date: 20110303
  Transmission Date: 20110831
  Serious: Yes (Other)
  Sender: FDA-Public Use
  Company Number: US-ASTRAZENECA-2011SE11769

PATIENT
  Age: 79 Year
  Sex: Female
  Weight: 60.3 kg

DRUGS (7)
  1. PROTONIX [Suspect]
     Indication: GASTROOESOPHAGEAL REFLUX DISEASE
     Route: 048
  2. PROTONIX [Suspect]
     Indication: BARRETT'S OESOPHAGUS
     Route: 048
  3. ADVAIR DISKUS 100/50 [Concomitant]
     Route: 055
  4. NEXIUM [Suspect]
     Route: 048
  5. PROTONIX [Suspect]
     Indication: PROPHYLAXIS AGAINST GASTROINTESTINAL ULCER
     Route: 048
  6. ACETYLSALICYLIC ACID [Suspect]
     Route: 065
  7. PEPCID [Suspect]
     Indication: ABDOMINAL DISCOMFORT
     Route: 065

REACTIONS (2)
  - MYOCARDIAL INFARCTION [None]
  - ARTHRITIS [None]
